FAERS Safety Report 11934638 (Version 1)
Quarter: 2016Q1

REPORT INFORMATION
  Report Type: Report from Study
  Country: CA (occurrence: CA)
  Receive Date: 20160121
  Receipt Date: 20160121
  Transmission Date: 20160526
  Serious: Yes (Hospitalization, Disabling)
  Sender: FDA-Public Use
  Company Number: CA-AMGEN-CANSL2016005110

PATIENT
  Age: 80 Year
  Sex: Male
  Weight: 72.56 kg

DRUGS (1)
  1. PROLIA [Suspect]
     Active Substance: DENOSUMAB
     Indication: OSTEOPOROSIS
     Dosage: 60 MG/ML, UNK
     Route: 058

REACTIONS (1)
  - Gastric ulcer haemorrhage [Recovered/Resolved]
